FAERS Safety Report 8319017-X (Version None)
Quarter: 2012Q2

REPORT INFORMATION
  Report Type: 
  Country: None (occurrence: None)
  Receive Date: 20120427
  Receipt Date: 20120418
  Transmission Date: 20120825
  Serious: Yes (Hospitalization, Other)
  Sender: FDA-Public Use
  Company Number: DE-JNJFOC-20120407805

PATIENT
  Sex: Female
  Weight: 2.92 kg

DRUGS (3)
  1. SEROQUEL [Suspect]
     Route: 064
     Dates: start: 20110322, end: 20110322
  2. RISPERDAL [Suspect]
     Indication: FOETAL EXPOSURE DURING PREGNANCY
     Route: 064
     Dates: start: 20110322, end: 20110322
  3. SEROQUEL [Suspect]
     Indication: FOETAL EXPOSURE DURING PREGNANCY
     Route: 064
     Dates: start: 20100628, end: 20110323

REACTIONS (4)
  - CONVULSION [None]
  - OXYGEN SATURATION DECREASED [None]
  - HEART RATE DECREASED [None]
  - NEONATAL RESPIRATORY DISTRESS SYNDROME [None]
